FAERS Safety Report 11195052 (Version 2)
Quarter: 2015Q3

REPORT INFORMATION
  Report Type: Report from Study
  Country: GB (occurrence: GB)
  Receive Date: 20150617
  Receipt Date: 20150707
  Transmission Date: 20151125
  Serious: Yes (Hospitalization, Other)
  Sender: FDA-Public Use
  Company Number: GB-ACCORD-031339

PATIENT
  Age: 73 Year
  Sex: Female

DRUGS (29)
  1. AMOXICILLIN. [Concomitant]
     Active Substance: AMOXICILLIN
     Dates: start: 20130213, end: 20130219
  2. AUGMENTIN [Concomitant]
     Active Substance: AMOXICILLIN\CLAVULANATE POTASSIUM
     Dates: start: 20130412, end: 20130418
  3. AZOPT [Concomitant]
     Active Substance: BRINZOLAMIDE
     Dosage: 10 MG/ML.?TOTAL DAILY DOSE: 1 GTT RIGHT EYE (1 DROP TWICE DAILY)
     Dates: start: 20120110
  4. LAPATINIB/LAPATINIB DITOSYLATE [Suspect]
     Active Substance: LAPATINIB
     Indication: PRODUCT USED FOR UNKNOWN INDICATION
     Dosage: STOPPED AND RESTARTED WITH REDUCED DOSE OF 750 MG ON 24-SEP-2013.
     Dates: start: 20130827, end: 20130923
  5. LOPERAMIDE [Concomitant]
     Active Substance: LOPERAMIDE
     Dosage: INITIALLY RECEIVED FROM 14-DEC-2012. ?ALSO RECEIVED FROM 10-SEP-2013.
     Dates: start: 201306
  6. ZOMORPH [Concomitant]
     Active Substance: MORPHINE SULFATE
     Dosage: INITIALLY RECEIVED FROM 02-JAN-2011 TO 22-JAN-2013,?RECEIVED 30MGBID FROM 18-JAN-2013 TO 22-JAN-201
     Dates: start: 20130814
  7. CLARITHROMYCIN/CLARITHROMYCIN LACTOBIONATE [Concomitant]
     Dates: start: 20130227, end: 20130305
  8. DEXAMETHASONE. [Concomitant]
     Active Substance: DEXAMETHASONE
     Dosage: INITIALLY RECEIVED FROM 07-JUN-2013 TO 20-AUG-2013 (74 DAYS).
     Dates: start: 20130821, end: 20131001
  9. REFRESH OPTIVE [Concomitant]
     Active Substance: CARBOXYMETHYLCELLULOSE SODIUM\GLYCERIN
     Dosage: DAILY DOSE: 10 ML 1 DROPS
     Dates: start: 20130724
  10. SANDO K [Concomitant]
     Dosage: INITIALLY RECEIVED 1 DF TABLET FROM 19-APR-2013 TO 23-APR-2013 (4 D)
     Dates: start: 20130911, end: 20130916
  11. PACLITAXEL/PACLITAXEL LIPOSOME [Suspect]
     Active Substance: PACLITAXEL
     Indication: HER-2 POSITIVE BREAST CANCER
     Dosage: MOST RECENT DOSE PRIOR TO SAE: 12-APR-2013
     Dates: start: 20121221
  12. PERTUZUMAB [Suspect]
     Active Substance: PERTUZUMAB
     Indication: HER-2 POSITIVE BREAST CANCER
     Dosage: LOADING DOSE.?INITIALLY RECEIVED LOADING DOSE 840 MG ONE CYCLE ON 06-DEC-2012.
     Route: 042
     Dates: start: 20121227
  13. XELODA [Suspect]
     Active Substance: CAPECITABINE
     Indication: PRODUCT USED FOR UNKNOWN INDICATION
     Dosage: 1000 MG
     Dates: start: 20130827
  14. GANFORT [Concomitant]
     Active Substance: BIMATOPROST\TIMOLOL
     Dosage: 1 DROP 3 ML AT NIGHT
     Dates: start: 20090731
  15. METRONIDAZOLE. [Concomitant]
     Active Substance: METRONIDAZOLE
     Dates: start: 20130508, end: 20130515
  16. LANSOPRAZOLE. [Concomitant]
     Active Substance: LANSOPRAZOLE
     Dates: start: 20130724
  17. PARACETAMOL [Concomitant]
     Active Substance: ACETAMINOPHEN
     Dosage: TOTAL DAILY DOSE: 500 MG AS REQUIRED
     Dates: start: 20121101
  18. PERINDOPRIL/PERINDOPRIL ERBUMINE [Concomitant]
     Dates: start: 200806, end: 20130612
  19. BENDROFLUMETHIAZIDE [Concomitant]
     Active Substance: BENDROFLUMETHIAZIDE
     Dosage: INITIALLY RECEIVED 2.5 MG OD FROM MAY-1998 TO 12-JUN-2013 AND FROM 14-JUN-2013 TO 25-JUN-2013 (11D).
     Dates: start: 20130702, end: 20130710
  20. FLUOXETINE [Concomitant]
     Active Substance: FLUOXETINE\FLUOXETINE HYDROCHLORIDE
     Dosage: INITIALLY RECEIVED OD FROM 01-NOV-2012 TO 21-DEC-2012, UNKNOWN DOSE FROM 02-APR-2013.
     Dates: start: 20130801
  21. FUROSEMIDE. [Concomitant]
     Active Substance: FUROSEMIDE
     Dates: start: 20130716
  22. METOCLOPRAMIDE. [Concomitant]
     Active Substance: METOCLOPRAMIDE
     Dates: start: 20130113, end: 20130114
  23. DIFFLAM [Concomitant]
     Active Substance: BENZYDAMINE HYDROCHLORIDE
     Dates: start: 201212
  24. SENNA [Concomitant]
     Active Substance: SENNA LEAF\SENNOSIDES\SENNOSIDES A AND B
     Dates: start: 20130118, end: 20130118
  25. TRAMADOL. [Concomitant]
     Active Substance: TRAMADOL
     Dates: start: 20121101
  26. TRIMETHOPRIM/TRIMETHOPRIM LACTATE/TRIMETHOPRIM SULFATE [Concomitant]
     Dosage: INITIALLY RECEIVED FROM 22-JAN-2013
     Dates: start: 20130913, end: 20130916
  27. HERCEPTIN [Suspect]
     Active Substance: TRASTUZUMAB
     Indication: HER-2 POSITIVE BREAST CANCER
     Dosage: MAINTENANCE DOSE.?RECEIVED LOADING DOSE AT 8MG/KG CYCLIC ON 06-DEC-2012.
     Route: 042
     Dates: start: 20121227
  28. LACTULOSE. [Concomitant]
     Active Substance: LACTULOSE
     Dates: start: 20130703
  29. SIMVASTATIN. [Concomitant]
     Active Substance: SIMVASTATIN
     Dates: start: 201112

REACTIONS (3)
  - Diarrhoea [Recovered/Resolved]
  - Lethargy [Unknown]
  - Dehydration [Recovered/Resolved]

NARRATIVE: CASE EVENT DATE: 20130909
